FAERS Safety Report 22127167 (Version 1)
Quarter: 2023Q1

REPORT INFORMATION
  Report Type: Report from Study
  Country: GB (occurrence: None)
  Receive Date: 20230322
  Receipt Date: 20230322
  Transmission Date: 20230418
  Serious: Yes (Death, Life-Threatening, Hospitalization, Other)
  Sender: FDA-Public Use
  Company Number: 2023A028656

PATIENT
  Age: 17 Year
  Sex: Female

DRUGS (2)
  1. CILGAVIMAB\TIXAGEVIMAB [Suspect]
     Active Substance: CILGAVIMAB\TIXAGEVIMAB
     Indication: COVID-19 prophylaxis
     Dosage: 600 MG (300 MG OF TIXAGEVIMAB X 300 MG OF CILGAVIMAB)
     Route: 042
     Dates: start: 20221205, end: 20221205
  2. CILGAVIMAB\TIXAGEVIMAB [Suspect]
     Active Substance: CILGAVIMAB\TIXAGEVIMAB
     Indication: COVID-19 treatment
     Dosage: 600 MG (300 MG OF TIXAGEVIMAB X 300 MG OF CILGAVIMAB)
     Route: 042
     Dates: start: 20221205, end: 20221205

REACTIONS (2)
  - Metapneumovirus infection [Not Recovered/Not Resolved]
  - Device related sepsis [Fatal]

NARRATIVE: CASE EVENT DATE: 20220131
